FAERS Safety Report 12268104 (Version 2)
Quarter: 2016Q3

REPORT INFORMATION
  Report Type: Spontaneous
  Country: AR (occurrence: AR)
  Receive Date: 20160414
  Receipt Date: 20160701
  Transmission Date: 20161109
  Serious: Yes (Other)
  Sender: FDA-Public Use
  Company Number: AR-GILEAD-2016-0208597

PATIENT
  Age: 68 Year
  Sex: Male

DRUGS (1)
  1. AMBRISENTAN [Suspect]
     Active Substance: AMBRISENTAN
     Indication: PULMONARY ARTERIAL HYPERTENSION
     Route: 065

REACTIONS (6)
  - Dizziness [Unknown]
  - Nausea [Unknown]
  - Anaemia [Unknown]
  - Arrhythmia [Unknown]
  - Angiodysplasia [Unknown]
  - Hypoxia [Unknown]
